APPROVED DRUG PRODUCT: CITANEST FORTE
Active Ingredient: EPINEPHRINE BITARTRATE; PRILOCAINE HYDROCHLORIDE
Strength: 0.005MG/ML;4%
Dosage Form/Route: INJECTABLE;INJECTION
Application: N014763 | Product #008
Applicant: ASTRAZENECA LP
Approved: Approved Prior to Jan 1, 1982 | RLD: No | RS: No | Type: DISCN